FAERS Safety Report 10407272 (Version 1)
Quarter: 2014Q3

REPORT INFORMATION
  Report Type: Spontaneous
  Country: US (occurrence: US)
  Receive Date: 20140825
  Receipt Date: 20140825
  Transmission Date: 20150326
  Serious: No
  Sender: FDA-Public Use
  Company Number: US-PFIZER INC-2014235778

PATIENT
  Age: 57 Year
  Sex: Female
  Weight: 136.05 kg

DRUGS (2)
  1. EXFORGE [Concomitant]
     Active Substance: AMLODIPINE BESYLATE\VALSARTAN
     Indication: HYPERTENSION
     Dosage: UNK
  2. CELEBREX [Suspect]
     Active Substance: CELECOXIB
     Indication: ARTHRALGIA
     Dosage: UNK, 3X/DAY
     Dates: start: 201408, end: 201408

REACTIONS (2)
  - Pruritus [Recovered/Resolved]
  - Nail discolouration [Not Recovered/Not Resolved]

NARRATIVE: CASE EVENT DATE: 201408
